FAERS Safety Report 13774886 (Version 6)
Quarter: 2018Q1

REPORT INFORMATION
  Report Type: Spontaneous
  Country: US (occurrence: US)
  Receive Date: 20170720
  Receipt Date: 20180328
  Transmission Date: 20180508
  Serious: Yes (Hospitalization, Congenital Anomaly, Other)
  Sender: FDA-Public Use
  Company Number: PHEH2017US022212

PATIENT
  Sex: Male

DRUGS (2)
  1. ZOFRAN ODT [Suspect]
     Active Substance: ONDANSETRON HYDROCHLORIDE
     Indication: FOETAL EXPOSURE DURING PREGNANCY
     Route: 064
  2. ZOFRAN [Suspect]
     Active Substance: ONDANSETRON HYDROCHLORIDE
     Indication: FOETAL EXPOSURE DURING PREGNANCY
     Route: 064

REACTIONS (15)
  - Congenital umbilical hernia [Unknown]
  - Pneumonia [Unknown]
  - Cleft palate [Unknown]
  - Pyelocaliectasis [Unknown]
  - Candida infection [Unknown]
  - Apnoea [Unknown]
  - Kidney small [Unknown]
  - Injury [Unknown]
  - Cleft lip [Unknown]
  - Foetal exposure during pregnancy [Unknown]
  - Gastrooesophageal reflux disease [Unknown]
  - Bradycardia [Unknown]
  - Upper airway obstruction [Unknown]
  - Premature baby [Unknown]
  - Anaemia neonatal [Unknown]

NARRATIVE: CASE EVENT DATE: 20060126
